FAERS Safety Report 10681924 (Version 1)
Quarter: 2014Q4

REPORT INFORMATION
  Report Type: Spontaneous
  Country: FR (occurrence: FR)
  Receive Date: 20141230
  Receipt Date: 20141230
  Transmission Date: 20150529
  Serious: Yes (Other)
  Sender: FDA-Public Use
  Company Number: FR-ROCHE-1515063

PATIENT
  Age: 20 Year
  Sex: Female

DRUGS (4)
  1. VENTOLINE [Concomitant]
     Active Substance: ALBUTEROL
  2. KESTIN [Concomitant]
     Active Substance: EBASTINE
  3. SERETIDE [Concomitant]
     Active Substance: FLUTICASONE FUROATE\SALMETEROL XINAFOATE
  4. XOLAIR [Suspect]
     Active Substance: OMALIZUMAB
     Indication: ASTHMA
     Route: 058
     Dates: start: 20141119, end: 20141119

REACTIONS (2)
  - Urticaria [Recovered/Resolved]
  - Visual acuity reduced [Not Recovered/Not Resolved]

NARRATIVE: CASE EVENT DATE: 20141119
